FAERS Safety Report 25895674 (Version 2)
Quarter: 2025Q4

REPORT INFORMATION
  Report Type: Spontaneous
  Country: EU (occurrence: EU)
  Receive Date: 20251008
  Receipt Date: 20251229
  Transmission Date: 20260117
  Serious: Yes (Hospitalization, Other)
  Sender: AUROBINDO
  Company Number: EU-AFSSAPS-TO2025001528

PATIENT
  Age: 73 Year
  Sex: Female

DRUGS (2)
  1. MELPHALAN [Suspect]
     Active Substance: MELPHALAN
     Indication: Plasma cell myeloma
     Dosage: 60 MILLIGRAM, ONCE A DAY
     Dates: start: 20250328, end: 20250328
  2. MELPHALAN [Suspect]
     Active Substance: MELPHALAN
     Dosage: 70 MILLIGRAM, ONCE A DAY
     Dates: start: 20250331, end: 20250331

REACTIONS (1)
  - Bone marrow failure [Recovered/Resolved]

NARRATIVE: CASE EVENT DATE: 20250328
